FAERS Safety Report 11392693 (Version 2)
Quarter: 2015Q3

REPORT INFORMATION
  Report Type: Report from Study
  Country: CA (occurrence: CA)
  Receive Date: 20150818
  Receipt Date: 20150929
  Transmission Date: 20151125
  Serious: Yes (Hospitalization, Other)
  Sender: FDA-Public Use
  Company Number: CA-AMGEN-CANSL2015083181

PATIENT
  Age: 90 Year
  Sex: Female

DRUGS (18)
  1. PROLIA [Suspect]
     Active Substance: DENOSUMAB
     Indication: OSTEOPOROSIS POSTMENOPAUSAL
     Dosage: 60 MG/ML, UNK
     Route: 058
     Dates: start: 20120726
  2. REACTINE                           /00884302/ [Concomitant]
     Active Substance: CETIRIZINE HYDROCHLORIDE
     Indication: PAIN IN EXTREMITY
  3. NITROGLYCERIN. [Concomitant]
     Active Substance: NITROGLYCERIN
     Indication: CHEST PAIN
     Dosage: 0.4MG/DOSE AEROSOL GRAM TRANSLING 1 SPRAY, ONE TIME ONLY 1 SPRAY EVERY 5 MINUTES THREE TIMES
  4. APO-FOSINOPRIL [Concomitant]
     Dosage: 20 MG,1 TABLET TWO TIMES DAILY FOR 30 DAYS REDUCED FROM 2 TABS, BID
  5. DOXAZOSIN [Concomitant]
     Active Substance: DOXAZOSIN\DOXAZOSIN MESYLATE
  6. CIPRALEX [Concomitant]
     Active Substance: ESCITALOPRAM OXALATE
     Dosage: 5 MG, UNK
  7. LASIX [Concomitant]
     Active Substance: FUROSEMIDE
     Dosage: 40 MG, QD, ONCE DAILY FOR 30 DAY
  8. REACTINE                           /00884302/ [Concomitant]
     Active Substance: CETIRIZINE HYDROCHLORIDE
     Indication: BACK PAIN
     Dosage: 20 MG (FOR 30 DAYS), QD
  9. NITRO-DUR [Concomitant]
     Active Substance: NITROGLYCERIN
     Dosage: 0.2 RNG/HR PATCH 1PATCH ONCE DAILY FOR 90 DAYS ON AT 5AM, OFF AT 6PM, UNK
  10. DETROL [Concomitant]
     Active Substance: TOLTERODINE TARTRATE
     Dosage: 2 MG,1 TABLETS TWO TIMES DAILY FOR 30 DAYS, BID
  11. ULORIC [Concomitant]
     Active Substance: FEBUXOSTAT
     Dosage: 80 MG, QD FOR 30 DAYS
  12. DIAMICRON [Concomitant]
     Active Substance: GLICLAZIDE
     Dosage: 60 MG, BID, 1 TABLET TWO TIMES DAILY FOR 30 DAYS, BID
  13. COLCHICINE. [Concomitant]
     Active Substance: COLCHICINE
     Dosage: 0.6 MG, UNK
  14. FOSINOPRIL [Concomitant]
     Active Substance: FOSINOPRIL
     Dosage: 20 MG, BID, TABLETS TWO TIMES DAILY FOR 30 DAYS
  15. TYLENOL [Concomitant]
     Active Substance: ACETAMINOPHEN
     Dosage: 325 MG, AS NECESSARY, 1-2 TABLETS EVERY 6 HOURS, PRN FOR 30 DAYS
  16. ACETAMINOPHEN. [Concomitant]
     Active Substance: ACETAMINOPHEN
     Dosage: 325 MG, 2 TABLETS EVERY 6 HOURS FOR 30 DAYS, BID
  17. REACTINE                           /00884302/ [Concomitant]
     Active Substance: CETIRIZINE HYDROCHLORIDE
     Indication: PARAESTHESIA
  18. NORVASC [Concomitant]
     Active Substance: AMLODIPINE BESYLATE
     Dosage: 5 MG, 1 TABLET EVERY DAY AT BEDTIME FOR 30 DAYS

REACTIONS (32)
  - Macular degeneration [Unknown]
  - Pancreatic atrophy [Unknown]
  - Splenic artery aneurysm [Unknown]
  - Spinal compression fracture [Unknown]
  - Renal failure [Recovered/Resolved]
  - Sleep apnoea syndrome [Unknown]
  - Colonoscopy [Unknown]
  - Clostridium difficile infection [Unknown]
  - Ventricular extrasystoles [Unknown]
  - Diverticulum [Unknown]
  - Spinal osteoarthritis [Unknown]
  - Osteoarthritis [Unknown]
  - Road traffic accident [Unknown]
  - Umbilical hernia [Unknown]
  - Hepatic steatosis [Unknown]
  - Intervertebral disc degeneration [Unknown]
  - Spinal column stenosis [Unknown]
  - Cholelithiasis [Unknown]
  - Nephrolithiasis [Unknown]
  - Pulmonary embolism [Unknown]
  - Diverticulitis [Unknown]
  - Renal mass [Unknown]
  - Nephropathy [Unknown]
  - Urinary tract infection [Recovered/Resolved]
  - Renal stone removal [Unknown]
  - Renal cyst [Unknown]
  - Colitis microscopic [Unknown]
  - Angioplasty [Unknown]
  - Knee arthroplasty [Unknown]
  - Thyroid neoplasm [Unknown]
  - Uterine leiomyoma [Unknown]
  - Gastrooesophageal reflux disease [Unknown]

NARRATIVE: CASE EVENT DATE: 2014
